FAERS Safety Report 19479521 (Version 1)
Quarter: 2021Q3

REPORT INFORMATION
  Report Type: Spontaneous
  Country: US (occurrence: US)
  Receive Date: 20210701
  Receipt Date: 20210701
  Transmission Date: 20211014
  Serious: Yes (Hospitalization, Disabling)
  Sender: FDA-Public Use
  Company Number: US-JNJFOC-20111109218

PATIENT
  Age: 61 Year
  Sex: Female
  Weight: 95.34 kg

DRUGS (1)
  1. REMICADE [Suspect]
     Active Substance: INFLIXIMAB
     Indication: PYODERMA GANGRENOSUM
     Dosage: 2 INFUSIONS
     Route: 042
     Dates: start: 20110915, end: 20111024

REACTIONS (1)
  - Myelitis transverse [Not Recovered/Not Resolved]

NARRATIVE: CASE EVENT DATE: 20111024
